FAERS Safety Report 5117656-0 (Version None)
Quarter: 2006Q3

REPORT INFORMATION
  Report Type: 
  Country: None (occurrence: None)
  Receive Date: 20060928
  Receipt Date: 20060928
  Transmission Date: 20061208
  Serious: Yes (Death)
  Sender: FDA-Public Use
  Company Number: None

PATIENT
  Age: 12 Day
  Sex: Male
  Weight: 0.73 kg

DRUGS (8)
  1. PROCRIT [Suspect]
     Dosage: 400 U/KG (0.07 MLS) 3 TIMES WEEKLY SQ
     Route: 058
     Dates: start: 20060915, end: 20060926
  2. INDOMETHACIN [Concomitant]
  3. INSULIN DRIP [Concomitant]
  4. DOPAMINE DRIP [Concomitant]
  5. CEFOTAXIME [Concomitant]
  6. VANCOMYCIN [Concomitant]
  7. FENTANYL [Concomitant]
  8. MIDAZOLAM HYDROCHLORIDE [Concomitant]

REACTIONS (9)
  - HYPOVOLAEMIA [None]
  - NEONATAL DISORDER [None]
  - NEONATAL RESPIRATORY FAILURE [None]
  - OLIGURIA [None]
  - POLYURIA [None]
  - PULMONARY HAEMORRHAGE [None]
  - RENAL FAILURE NEONATAL [None]
  - SEPSIS NEONATAL [None]
  - SMALL FOR DATES BABY [None]
